FAERS Safety Report 8268104-3 (Version None)
Quarter: 2012Q2

REPORT INFORMATION
  Report Type: 
  Country: None (occurrence: None)
  Receive Date: 20120409
  Receipt Date: 20120326
  Transmission Date: 20120825
  Serious: Yes (Hospitalization)
  Sender: FDA-Public Use
  Company Number: FR-ELI_LILLY_AND_COMPANY-FR201203007847

PATIENT
  Age: 40 Year
  Sex: Male

DRUGS (2)
  1. VIAGRA [Concomitant]
     Dosage: 100 MG, UNK
  2. CIALIS [Suspect]
     Dosage: 20 MG, UNK

REACTIONS (3)
  - INCORRECT DOSE ADMINISTERED [None]
  - HEADACHE [None]
  - VOMITING [None]
